FAERS Safety Report 4299394-X (Version None)
Quarter: 2004Q1

REPORT INFORMATION
  Report Type: 
  Country: None (occurrence: None)
  Receive Date: 20040217
  Receipt Date: 20040129
  Transmission Date: 20041129
  Serious: Yes (Other)
  Sender: FDA-Public Use
  Company Number: DSA_23938_2004

PATIENT
  Age: 30 Year
  Sex: Female
  Weight: 95.3 kg

DRUGS (4)
  1. LORAZEPAM [Suspect]
     Indication: ANGINA PECTORIS
     Dosage: 1 MG Q DAY PO
     Route: 048
     Dates: start: 20031121, end: 20031121
  2. LORAZEPAM [Suspect]
     Indication: STRESS SYMPTOMS
     Dosage: 1 MG Q DAY PO
     Route: 048
     Dates: start: 20031121, end: 20031121
  3. SINQUAN [Concomitant]
  4. VALVERDE [Concomitant]

REACTIONS (5)
  - BLOOD PRESSURE INCREASED [None]
  - FALL [None]
  - HEADACHE [None]
  - LOSS OF CONSCIOUSNESS [None]
  - SYNCOPE [None]
